FAERS Safety Report 9725303 (Version 1)
Quarter: 2013Q4

REPORT INFORMATION
  Report Type: Spontaneous
  Country: US (occurrence: None)
  Receive Date: 20131202
  Receipt Date: 20131202
  Transmission Date: 20140711
  Serious: No
  Sender: FDA-Public Use
  Company Number: None

PATIENT
  Age: 9 Year
  Sex: Male
  Weight: 24.95 kg

DRUGS (1)
  1. CONCERTA/RITALIN 54 MG [Suspect]
     Indication: ATTENTION DEFICIT/HYPERACTIVITY DISORDER
     Dates: start: 20120822, end: 20120922

REACTIONS (3)
  - Product substitution issue [None]
  - Abnormal behaviour [None]
  - Therapeutic response unexpected with drug substitution [None]
